FAERS Safety Report 5336112-8 (Version None)
Quarter: 2007Q2

REPORT INFORMATION
  Report Type: 
  Country: None (occurrence: None)
  Receive Date: 20070302
  Receipt Date: 20061102
  Transmission Date: 20071010
  Serious: No
  Sender: FDA-Public Use
  Company Number: PHEH2006US13637

PATIENT
  Age: 84 Year
  Sex: Female

DRUGS (1)
  1. ENABLEX [Suspect]
     Indication: HYPERTONIC BLADDER
     Dosage: 75 MG, QD
     Dates: start: 20061031

REACTIONS (3)
  - ABDOMINAL PAIN LOWER [None]
  - GAIT DISTURBANCE [None]
  - MUSCULAR WEAKNESS [None]
